FAERS Safety Report 26005165 (Version 2)
Quarter: 2025Q4

REPORT INFORMATION
  Report Type: Report from Study
  Country: CA (occurrence: CA)
  Receive Date: 20251106
  Receipt Date: 20251224
  Transmission Date: 20260118
  Serious: Yes (Hospitalization, Other)
  Sender: ESTEVE
  Company Number: CA-Esteve Pharmaceuticals SA-2187993

PATIENT
  Age: 65 Year
  Sex: Female

DRUGS (4)
  1. LYSODREN [Suspect]
     Active Substance: MITOTANE
     Indication: Adrenocortical carcinoma
     Dates: start: 202401, end: 20240130
  2. LYSODREN [Suspect]
     Active Substance: MITOTANE
     Route: 061
     Dates: start: 20240130
  3. LYSODREN [Suspect]
     Active Substance: MITOTANE
     Route: 061
     Dates: start: 20250512
  4. LYSODREN [Suspect]
     Active Substance: MITOTANE
     Route: 061

REACTIONS (7)
  - Malaise [Recovering/Resolving]
  - Renal impairment [Not Recovered/Not Resolved]
  - Full blood count abnormal [Recovered/Resolved]
  - Drug level decreased [Not Recovered/Not Resolved]
  - Gait disturbance [Not Recovered/Not Resolved]
  - Bradykinesia [Not Recovered/Not Resolved]
  - General physical health deterioration [Not Recovered/Not Resolved]
